FAERS Safety Report 13840144 (Version 1)
Quarter: 2017Q3

REPORT INFORMATION
  Report Type: Spontaneous
  Country: US (occurrence: US)
  Receive Date: 20170807
  Receipt Date: 20170807
  Transmission Date: 20171127
  Serious: No
  Sender: FDA-Public Use
  Company Number: None

PATIENT
  Sex: Female
  Weight: 10.89 kg

DRUGS (1)
  1. AMOXICILLIN FOR ORAL SUSPENSION USP 400MG/5ML [Suspect]
     Active Substance: AMOXICILLIN
     Indication: OTITIS MEDIA
     Dosage: 5 TEASPOONS, EVERY 12 HOURS, ORAL
     Route: 048
     Dates: start: 20170803, end: 20170806

REACTIONS (1)
  - Diarrhoea [None]

NARRATIVE: CASE EVENT DATE: 20170806
